FAERS Safety Report 18554424 (Version 2)
Quarter: 2021Q1

REPORT INFORMATION
  Report Type: Spontaneous
  Country: DE (occurrence: DE)
  Receive Date: 20201127
  Receipt Date: 20210204
  Transmission Date: 20210419
  Serious: Yes (Hospitalization, Other)
  Sender: FDA-Public Use
  Company Number: NVSC2020DE312660

PATIENT
  Age: 46 Year
  Sex: Female
  Weight: 50 kg

DRUGS (16)
  1. CIPROFLOXACIN. [Suspect]
     Active Substance: CIPROFLOXACIN
     Dosage: 11 G, UNKNOWN
     Route: 048
  2. CITRULLUS COLOCYNTHIS [Concomitant]
     Indication: DETOXIFICATION
     Dosage: 2 ML, QD
     Route: 065
     Dates: start: 20200111, end: 20200111
  3. FOLIC ACID. [Concomitant]
     Active Substance: FOLIC ACID
     Indication: NEUROPATHY PERIPHERAL
     Dosage: UNK
     Route: 042
  4. SPASCUPREEL [Concomitant]
     Indication: PRODUCT USED FOR UNKNOWN INDICATION
     Dosage: 1.1 ML, QD
     Route: 065
     Dates: start: 20200111, end: 20200111
  5. DYSTO LOGES N [Concomitant]
     Dosage: 2 ML, QD
     Route: 042
  6. DYSTO LOGES N [Concomitant]
     Indication: DETOXIFICATION
     Dosage: 2 ML, QD
     Route: 065
     Dates: start: 20200111, end: 20200111
  7. GASTROLUX (DIATRIZOATE MEGLUMINE\DIATRIZOATE SODIUM) [Suspect]
     Active Substance: DIATRIZOATE MEGLUMINE\DIATRIZOATE SODIUM
     Indication: DIAGNOSTIC PROCEDURE
     Dosage: UNK
     Route: 065
     Dates: start: 20200624, end: 20200624
  8. GASTROLUX (DIATRIZOATE MEGLUMINE\DIATRIZOATE SODIUM) [Suspect]
     Active Substance: DIATRIZOATE MEGLUMINE\DIATRIZOATE SODIUM
     Dosage: UNK
     Route: 065
  9. VITAMIN B12 [Concomitant]
     Active Substance: CYANOCOBALAMIN
     Indication: NEUROPATHY PERIPHERAL
     Dosage: 2 ML, QD
     Route: 065
     Dates: start: 20200111, end: 20200111
  10. VITAMIN B12 [Concomitant]
     Active Substance: CYANOCOBALAMIN
     Dosage: 3000 UG
     Route: 042
  11. PANTOPRAZOLE [Concomitant]
     Active Substance: PANTOPRAZOLE
     Indication: PRODUCT USED FOR UNKNOWN INDICATION
     Dosage: UNK
     Route: 065
  12. PASCORBIN [Concomitant]
     Active Substance: ASCORBIC ACID
     Indication: DETOXIFICATION
     Dosage: 2.5 ML, QD
     Route: 065
     Dates: start: 20200111, end: 20200111
  13. PASCORBIN [Concomitant]
     Active Substance: ASCORBIC ACID
     Dosage: 2.5 ML, QD
     Route: 042
  14. SPASCUPREEL [Concomitant]
     Dosage: 1.1 ML, QD
     Route: 042
  15. CIPROFLOXACIN. [Suspect]
     Active Substance: CIPROFLOXACIN
     Indication: BACTERIAL INFECTION
     Dosage: 500 MG (EVERY 2 DAYS)
     Route: 048
     Dates: start: 20191213, end: 20191223
  16. CITRULLUS COLOCYNTHIS [Concomitant]
     Dosage: 2 ML, QD
     Route: 042

REACTIONS (22)
  - Hypoaesthesia [Not Recovered/Not Resolved]
  - Insomnia [Not Recovered/Not Resolved]
  - Diarrhoea [Recovered/Resolved]
  - Ageusia [Not Recovered/Not Resolved]
  - Disturbance in attention [Not Recovered/Not Resolved]
  - Oropharyngeal pain [Not Recovered/Not Resolved]
  - Dizziness [Recovered/Resolved]
  - Rash [Recovered/Resolved]
  - Transaminases increased [Recovered/Resolved]
  - Tachycardia [Not Recovered/Not Resolved]
  - Hypoaesthesia [Not Recovered/Not Resolved]
  - Dry mouth [Not Recovered/Not Resolved]
  - Myalgia [Not Recovered/Not Resolved]
  - Muscle twitching [Not Recovered/Not Resolved]
  - Neck pain [Recovered/Resolved]
  - Dizziness [Not Recovered/Not Resolved]
  - Somnolence [Not Recovered/Not Resolved]
  - Feeling cold [Not Recovered/Not Resolved]
  - Dysphagia [Not Recovered/Not Resolved]
  - Paraesthesia [Not Recovered/Not Resolved]
  - Dry mouth [Not Recovered/Not Resolved]
  - Muscle spasticity [Not Recovered/Not Resolved]

NARRATIVE: CASE EVENT DATE: 20191231
